FAERS Safety Report 6239534-6 (Version None)
Quarter: 2009Q2

REPORT INFORMATION
  Report Type: 
  Country: None (occurrence: None)
  Receive Date: 20090622
  Receipt Date: 20090608
  Transmission Date: 20091009
  Serious: Yes (Hospitalization)
  Sender: FDA-Public Use
  Company Number: IN-TYCO HEALTHCARE/MALLINCKRODT-T200901149

PATIENT
  Age: 28 Year
  Sex: Male

DRUGS (6)
  1. NALTREXONE HYDROCHLORIDE [Suspect]
     Indication: DRUG DEPENDENCE
     Dosage: 25 MG, SINGLE
     Route: 048
  2. OPIUM                              /00040001/ [Suspect]
  3. DEXTROPROPOXYPHENE [Suspect]
  4. DIPHENOXYLATE [Suspect]
  5. CODEINE [Suspect]
  6. HEROIN [Suspect]

REACTIONS (5)
  - CONFUSIONAL STATE [None]
  - DEPRESSED LEVEL OF CONSCIOUSNESS [None]
  - DRUG DETOXIFICATION [None]
  - DRUG WITHDRAWAL SYNDROME [None]
  - TONIC CLONIC MOVEMENTS [None]
